FAERS Safety Report 8351822-6 (Version None)
Quarter: 2012Q2

REPORT INFORMATION
  Report Type: 
  Country: None (occurrence: None)
  Receive Date: 20120511
  Receipt Date: 20120503
  Transmission Date: 20120825
  Serious: No
  Sender: FDA-Public Use
  Company Number: US-BIOGENIDEC-2012BI016178

PATIENT
  Age: 41 Year
  Sex: Female

DRUGS (2)
  1. TYSABRI [Suspect]
     Route: 042
     Dates: start: 20120206
  2. TYSABRI [Suspect]
     Indication: MULTIPLE SCLEROSIS
     Route: 042
     Dates: start: 20090203, end: 20100803

REACTIONS (4)
  - CENTRAL NERVOUS SYSTEM LESION [None]
  - DYSURIA [None]
  - MUSCLE SPASTICITY [None]
  - MULTIPLE SCLEROSIS RELAPSE [None]
